FAERS Safety Report 19796939 (Version 1)
Quarter: 2021Q3

REPORT INFORMATION
  Report Type: Spontaneous
  Country: US (occurrence: US)
  Receive Date: 20210901
  Receipt Date: 20210901
  Transmission Date: 20211014
  Serious: Yes (Hospitalization)
  Sender: FDA-Public Use
  Company Number: None

PATIENT
  Sex: Male

DRUGS (1)
  1. CAPECITABINE 150MG NOVADOZ PHARMACEUTICALS [Suspect]
     Active Substance: CAPECITABINE
     Indication: COLORECTAL CANCER
     Dosage: CAPECITABINE 500MG TAKE 2 TABLETS BY MOUTH TWICE DAILY MONDAY?FRIDAY AND CAPECITABINE 150MG TAKE 3 TABLETS (450 MG TOTAL)
     Route: 048
     Dates: start: 202105

REACTIONS (2)
  - Vomiting [None]
  - Nausea [None]
